FAERS Safety Report 19093720 (Version 3)
Quarter: 2021Q2

REPORT INFORMATION
  Report Type: Report from Study
  Country: DK (occurrence: DK)
  Receive Date: 20210405
  Receipt Date: 20210504
  Transmission Date: 20210717
  Serious: Yes (Hospitalization, Other)
  Sender: FDA-Public Use
  Company Number: DK-JNJFOC-20210354869

PATIENT
  Age: 64 Year
  Sex: Female
  Weight: 56 kg

DRUGS (20)
  1. ACETYLSALICYLIC ACID [Suspect]
     Active Substance: ASPIRIN
     Indication: PERIPHERAL ARTERIAL OCCLUSIVE DISEASE
  2. LOSARTANKALIUM [Concomitant]
     Active Substance: LOSARTAN
     Dosage: 50 MG, BID
     Dates: start: 20170821, end: 20200514
  3. DOXAZOSIN [Concomitant]
     Active Substance: DOXAZOSIN MESYLATE
     Dosage: 4 MG, BID
     Dates: start: 20181113
  4. LOSARTAN. [Concomitant]
     Active Substance: LOSARTAN
     Dosage: 50 MG, BID
     Dates: start: 20200514
  5. ACETYLSALICYLIC ACID [Suspect]
     Active Substance: ASPIRIN
     Indication: CORONARY ARTERY DISEASE
     Dosage: 75 MG, QD
     Route: 065
     Dates: start: 20130109
  6. ACETYLSALICYLIC ACID [Suspect]
     Active Substance: ASPIRIN
     Indication: CARDIOVASCULAR EVENT PROPHYLAXIS
  7. PARACETAMOL [Concomitant]
     Active Substance: ACETAMINOPHEN
     Dosage: 1000 MG, QID
     Dates: start: 20190822
  8. NOVORAPID [Concomitant]
     Active Substance: INSULIN ASPART
     Dosage: 2 IU, BID
     Dates: start: 20200630
  9. RIVAROXABAN [Suspect]
     Active Substance: RIVAROXABAN
     Indication: PERIPHERAL ARTERIAL OCCLUSIVE DISEASE
     Dosage: 2.5 MG, BID
     Route: 048
     Dates: start: 20200806, end: 20210306
  10. NOVORAPID [Concomitant]
     Active Substance: INSULIN ASPART
     Dosage: 3 IU, QD
     Dates: start: 20200630
  11. TRESIBA [Concomitant]
     Active Substance: INSULIN DEGLUDEC
     Dosage: 10 IU, QD
     Dates: start: 20150526, end: 20200929
  12. MOXONIDIN [Concomitant]
     Active Substance: MOXONIDINE
     Dosage: 0.2 MG, BID
     Dates: start: 20190508
  13. RIVAROXABAN [Suspect]
     Active Substance: RIVAROXABAN
     Indication: CORONARY ARTERY DISEASE
     Dosage: 2.5 MG, BID
     Route: 048
     Dates: start: 20200330, end: 20200801
  14. ENALAPRIL;LERCANIDIPINE [Concomitant]
     Dosage: 20 MG, QD
     Dates: start: 20171202
  15. HYDROCHLORTHIAZID [Concomitant]
     Active Substance: HYDROCHLOROTHIAZIDE
     Dosage: 12.5 MG, QD
     Dates: start: 20181113
  16. RIVAROXABAN [Suspect]
     Active Substance: RIVAROXABAN
     Indication: CARDIOVASCULAR EVENT PROPHYLAXIS
     Route: 048
  17. NOVORAPID [Concomitant]
     Active Substance: INSULIN ASPART
     Dosage: 4 IU, TID
     Dates: start: 20140224, end: 20200630
  18. TRESIBA [Concomitant]
     Active Substance: INSULIN DEGLUDEC
     Dosage: 9 IU, QD
     Dates: start: 20200929
  19. METOPROLOL. [Concomitant]
     Active Substance: METOPROLOL
     Dosage: 100 MG, BID
     Dates: start: 20190326
  20. ATORVASTATIN [Concomitant]
     Active Substance: ATORVASTATIN
     Dosage: 40 MG, QD
     Dates: start: 20180622

REACTIONS (1)
  - Duodenal ulcer haemorrhage [Recovered/Resolved]

NARRATIVE: CASE EVENT DATE: 20210306
